FAERS Safety Report 12811769 (Version 2)
Quarter: 2017Q1

REPORT INFORMATION
  Report Type: Spontaneous
  Country: US (occurrence: US)
  Receive Date: 20161005
  Receipt Date: 20170203
  Transmission Date: 20170428
  Serious: No
  Sender: FDA-Public Use
  Company Number: US-SHIRE-US201614002

PATIENT
  Age: 54 Year
  Sex: Male
  Weight: 100.68 kg

DRUGS (1)
  1. VYVANSE [Suspect]
     Active Substance: LISDEXAMFETAMINE DIMESYLATE
     Indication: ATTENTION DEFICIT/HYPERACTIVITY DISORDER
     Dosage: 40 MG, 1X/DAY:QD
     Route: 048
     Dates: start: 20090909

REACTIONS (5)
  - Product tampering [Recovered/Resolved]
  - Feeling abnormal [Not Recovered/Not Resolved]
  - Therapeutic response decreased [Unknown]
  - Disturbance in attention [Not Recovered/Not Resolved]
  - Product quality issue [Unknown]

NARRATIVE: CASE EVENT DATE: 201609
